FAERS Safety Report 7772060-1 (Version None)
Quarter: 2011Q3

REPORT INFORMATION
  Report Type: 
  Country: None (occurrence: None)
  Receive Date: 20110922
  Receipt Date: 20110718
  Transmission Date: 20111222
  Serious: Yes (Hospitalization)
  Sender: FDA-Public Use
  Company Number: US-ASTRAZENECA-2009UW17584

PATIENT
  Age: 53 Year
  Sex: Female
  Weight: 95.3 kg

DRUGS (44)
  1. CYMBALTA [Concomitant]
     Dosage: 30-60 MG
     Route: 048
     Dates: start: 20080101
  2. GLUCOVANCE [Concomitant]
     Dosage: 5/500 TAB 1 BY MOUTH EVERY AM AND AT BEDTIME
  3. DILANTIN [Concomitant]
     Dates: start: 19930501
  4. ADVAIR DISKUS 100/50 [Concomitant]
     Dosage: 500/50 ONE PUFF EVERY 12 HOURS
  5. PROZAC [Concomitant]
     Route: 048
  6. LEXAPRO [Concomitant]
     Dates: start: 20031029
  7. MIRTAZAPINE [Concomitant]
     Dates: start: 20040309
  8. TEMAZEPAM [Concomitant]
     Indication: INSOMNIA
     Dosage: 15 MG, AT BEDTIME, PRN
     Dates: start: 20070305
  9. TRAZODONE HCL [Concomitant]
     Dates: start: 20031111
  10. FLUOXETINE HCL [Concomitant]
     Dosage: 10-20 MG
     Dates: start: 20040521
  11. WELLBUTRIN XL [Concomitant]
     Dates: start: 20040802
  12. LORTAB [Concomitant]
     Indication: PAIN
     Dosage: 7.5/500 TAB 1 BY MOUTH AS NEEDED EVERY 4 HOURS
     Route: 048
  13. XANAX [Concomitant]
     Route: 048
  14. ZOFRAN [Concomitant]
     Indication: NAUSEA
     Dates: start: 20080122
  15. AMBIEN [Concomitant]
     Dates: start: 20090830
  16. PROPOXYPHENE NAPSYLATE AND ACETAMINOPHEN [Concomitant]
     Dosage: 100-650
     Dates: start: 20040402
  17. SEROQUEL [Suspect]
     Route: 048
     Dates: start: 20080412, end: 20080721
  18. PROTONIX [Concomitant]
     Route: 048
  19. MORPHINE [Concomitant]
     Indication: PAIN
     Dates: start: 20071001
  20. SEROQUEL [Suspect]
     Indication: POST-TRAUMATIC STRESS DISORDER
     Dosage: 100 MG, 200 MG AND 800 MG
     Route: 048
     Dates: start: 20040201, end: 20080520
  21. RISPERDAL [Concomitant]
     Route: 048
  22. LORTAB [Concomitant]
     Dosage: 5/500 TAB
     Route: 048
     Dates: start: 20030716
  23. PROTONIX [Concomitant]
     Route: 048
  24. ARTHROTEC [Concomitant]
     Dates: start: 20071014
  25. TRAMADOL HCL [Concomitant]
     Indication: PAIN
     Dates: start: 20071014
  26. SEROQUEL [Suspect]
     Route: 048
     Dates: start: 20080412, end: 20080721
  27. RISPERDAL [Concomitant]
     Route: 048
     Dates: start: 20040309
  28. PROTONIX [Concomitant]
     Route: 048
     Dates: start: 20040402
  29. MORPHINE [Concomitant]
     Dosage: 2 MG IV 0.5 MIN PRN
  30. PREDNISONE [Concomitant]
     Route: 048
     Dates: start: 20070305
  31. ZOFRAN [Concomitant]
     Indication: PAIN
     Dates: start: 20080122
  32. PHENERGAN HCL [Concomitant]
     Indication: HEADACHE
     Dates: start: 20080122
  33. PRISTIQ [Concomitant]
     Dates: start: 20090830
  34. LASIX [Concomitant]
     Dates: start: 20031118
  35. KADIAN [Concomitant]
     Dates: start: 20031112
  36. SEROQUEL [Suspect]
     Indication: SLEEP DISORDER
     Dosage: 100 MG, 200 MG AND 800 MG
     Route: 048
     Dates: start: 20040201, end: 20080520
  37. SEROQUEL [Suspect]
     Indication: PSYCHOTIC DISORDER
     Dosage: 100 MG, 200 MG AND 800 MG
     Route: 048
     Dates: start: 20040201, end: 20080520
  38. SEROQUEL [Suspect]
     Indication: DEPRESSION
     Dosage: 100 MG, 200 MG AND 800 MG
     Route: 048
     Dates: start: 20040201, end: 20080520
  39. SEROQUEL [Suspect]
     Route: 048
     Dates: start: 20080412, end: 20080721
  40. SEROQUEL [Suspect]
     Route: 048
     Dates: start: 20080412, end: 20080721
  41. MORPHINE [Concomitant]
     Dates: start: 20080116
  42. PREDNISONE [Concomitant]
     Route: 048
     Dates: start: 20031103
  43. NUBAIN [Concomitant]
     Indication: HEADACHE
     Dates: start: 20080122
  44. SOLU-MEDROL [Concomitant]
     Dates: start: 20071001

REACTIONS (6)
  - DIABETES MELLITUS [None]
  - BLOOD GLUCOSE INCREASED [None]
  - OBESITY [None]
  - HYPERGLYCAEMIA [None]
  - TYPE 2 DIABETES MELLITUS [None]
  - DIABETES MELLITUS INADEQUATE CONTROL [None]
